FAERS Safety Report 8890970 (Version 1)
Quarter: 2012Q4

REPORT INFORMATION
  Report Type: 
  Country: CA (occurrence: CA)
  Receive Date: 20121106
  Receipt Date: 20121106
  Transmission Date: 20130627
  Serious: Yes (Life-Threatening, Hospitalization)
  Sender: FDA-Public Use
  Company Number: CA-CELGENEUS-028-21880-12110239

PATIENT
  Age: 71 Year
  Sex: Male

DRUGS (5)
  1. REVLIMID [Suspect]
     Indication: MULTIPLE MYELOMA
     Dosage: 25 Milligram
     Route: 048
     Dates: start: 20120905
  2. DEXAMETHASONE [Concomitant]
     Indication: MULTIPLE MYELOMA
     Route: 048
     Dates: start: 20120905
  3. WARFARIN [Concomitant]
     Indication: AORTIC VALVE REPLACEMENT
     Route: 065
  4. LEVOTHYROXINE [Concomitant]
     Indication: HYPOTHYROIDISM
     Dosage: 100 Microgram
     Route: 065
  5. ZOPICLONE [Concomitant]
     Indication: DRUG USE FOR UNKNOWN INDICATION
     Dosage: 180 Milligram
     Route: 065

REACTIONS (5)
  - Hypotension [Recovered/Resolved]
  - Jaundice [Recovered/Resolved]
  - Atrial fibrillation [Recovered/Resolved]
  - Cough [Recovered/Resolved]
  - Lethargy [Recovered/Resolved]
